FAERS Safety Report 8439122-7 (Version None)
Quarter: 2012Q2

REPORT INFORMATION
  Report Type: 
  Country: None (occurrence: None)
  Receive Date: 20120615
  Receipt Date: 20120608
  Transmission Date: 20120825
  Serious: Yes (Life-Threatening, Hospitalization)
  Sender: FDA-Public Use
  Company Number: AU-JNJFOC-20120313061

PATIENT
  Age: 26 Year
  Sex: Male
  Weight: 80 kg

DRUGS (7)
  1. DROPERIDOL [Suspect]
     Indication: SCHIZOAFFECTIVE DISORDER
     Route: 065
  2. CLOPIXOL ACUPHASE [Suspect]
     Indication: SCHIZOAFFECTIVE DISORDER
     Route: 065
  3. INVEGA SUSTENNA [Suspect]
     Indication: SCHIZOAFFECTIVE DISORDER
     Route: 030
     Dates: start: 20120314
  4. RISPERIDONE [Suspect]
     Indication: SCHIZOAFFECTIVE DISORDER
     Route: 048
  5. ALCOHOL [Suspect]
     Indication: PRODUCT USED FOR UNKNOWN INDICATION
     Route: 065
  6. OLANZAPINE [Suspect]
     Indication: SCHIZOAFFECTIVE DISORDER
     Route: 065
  7. RISPERIDONE [Suspect]
     Route: 048

REACTIONS (5)
  - HOSPITALISATION [None]
  - HEPATIC ENZYME INCREASED [None]
  - CHOLESTASIS [None]
  - ABNORMAL BEHAVIOUR [None]
  - BLOOD BILIRUBIN INCREASED [None]
